FAERS Safety Report 17147616 (Version 4)
Quarter: 2020Q2

REPORT INFORMATION
  Report Type: Report from Study
  Country: US (occurrence: US)
  Receive Date: 20191212
  Receipt Date: 20200403
  Transmission Date: 20200713
  Serious: No
  Sender: FDA-Public Use
  Company Number: NVSC2019US065697

PATIENT
  Age: 69 Year
  Sex: Female

DRUGS (1)
  1. BEOVU [Suspect]
     Active Substance: BROLUCIZUMAB-DBLL
     Indication: NEOVASCULAR AGE-RELATED MACULAR DEGENERATION
     Dosage: UNK
     Route: 047
     Dates: start: 20191120

REACTIONS (7)
  - Eye pruritus [Recovered/Resolved]
  - Sinusitis [Unknown]
  - Memory impairment [Unknown]
  - Eye disorder [Recovering/Resolving]
  - Rash pruritic [Unknown]
  - Ocular hyperaemia [Recovered/Resolved]
  - Vitreous floaters [Unknown]

NARRATIVE: CASE EVENT DATE: 20191206
